FAERS Safety Report 9163771 (Version 2)
Quarter: 2013Q1

REPORT INFORMATION
  Report Type: Spontaneous
  Country: US (occurrence: US)
  Receive Date: 20130314
  Receipt Date: 20130325
  Transmission Date: 20140127
  Serious: Yes (Hospitalization, Other)
  Sender: FDA-Public Use
  Company Number: US-PFIZER INC-2013076205

PATIENT
  Age: 25 Year
  Sex: Male

DRUGS (4)
  1. DILANTIN-125 [Suspect]
     Indication: CONVULSION
     Dosage: 0.1 G, 2X/DAY (MORNING AND NIGHT)
  2. DILANTIN-125 [Suspect]
     Dosage: 4.5 GM
     Dates: start: 19400404
  3. PHENOBARBITAL [Concomitant]
     Indication: CONVULSION
     Dosage: 0.3 G, 3X/DAY
  4. PHENOBARBITAL [Concomitant]
     Dosage: 1 1/2 GRAINS NIGHTLY

REACTIONS (10)
  - Overdose [Recovered/Resolved]
  - Toxicity to various agents [Recovered/Resolved]
  - Coma [Recovered/Resolved]
  - Somnolence [Recovered/Resolved]
  - Dizziness [Recovered/Resolved]
  - Tremor [Recovered/Resolved]
  - Cold sweat [Recovered/Resolved]
  - Restlessness [Recovered/Resolved]
  - Headache [Recovered/Resolved]
  - Micturition urgency [Recovered/Resolved]
